FAERS Safety Report 24923920 (Version 4)
Quarter: 2025Q1

REPORT INFORMATION
  Report Type: Spontaneous
  Country: US (occurrence: US)
  Receive Date: 20250204
  Receipt Date: 20250321
  Transmission Date: 20250408
  Serious: No
  Sender: PFIZER
  Company Number: US-PFIZER INC-PV202500012706

PATIENT
  Age: 68 Year
  Sex: Female

DRUGS (2)
  1. IBRANCE [Suspect]
     Active Substance: PALBOCICLIB
  2. IBRANCE [Suspect]
     Active Substance: PALBOCICLIB
     Dosage: 100 MG, DAILY

REACTIONS (9)
  - Dizziness [Recovered/Resolved]
  - Hot flush [Unknown]
  - Dyspepsia [Unknown]
  - Fatigue [Recovering/Resolving]
  - Stomatitis [Unknown]
  - Taste disorder [Unknown]
  - White blood cell count decreased [Not Recovered/Not Resolved]
  - Back pain [Not Recovered/Not Resolved]
  - Gastrointestinal disorder [Recovered/Resolved]
